FAERS Safety Report 6552597-3 (Version None)
Quarter: 2010Q1

REPORT INFORMATION
  Report Type: 
  Country: None (occurrence: None)
  Receive Date: 20100126
  Receipt Date: 20100115
  Transmission Date: 20100710
  Serious: Yes (Death)
  Sender: FDA-Public Use
  Company Number: US-JNJCH-2010001823

PATIENT
  Age: 55 Year
  Sex: Male

DRUGS (3)
  1. NICOTINE (UNSPECIFIED) [Suspect]
     Indication: SUICIDE ATTEMPT
     Dosage: TEXT:UNKNOWN
     Route: 048
  2. METOPROLOL [Suspect]
     Indication: SUICIDE ATTEMPT
     Dosage: TEXT:UNKNOWN
     Route: 048
  3. ETHANOL [Suspect]
     Indication: SUICIDE ATTEMPT
     Dosage: TEXT:UNKNOWN
     Route: 048

REACTIONS (8)
  - COMPLETED SUICIDE [None]
  - DRUG SCREEN POSITIVE [None]
  - DRUG TOXICITY [None]
  - HEPATIC FIBROSIS [None]
  - HEPATIC STEATOSIS [None]
  - MYOCARDIAL FIBROSIS [None]
  - PULMONARY CONGESTION [None]
  - VISCERAL CONGESTION [None]
